FAERS Safety Report 5165841-4 (Version None)
Quarter: 2006Q4

REPORT INFORMATION
  Report Type: 
  Country: None (occurrence: None)
  Receive Date: 20061128
  Receipt Date: 20061115
  Transmission Date: 20070319
  Serious: Yes (Other)
  Sender: FDA-Public Use
  Company Number: 15184

PATIENT
  Age: 55 Year
  Sex: Female

DRUGS (2)
  1. MORPHINE [Suspect]
     Indication: POSTOPERATIVE ANALGESIA
     Dosage: 40 MG UNK EP
  2. BUPIVACAINE [Concomitant]

REACTIONS (7)
  - ACCIDENTAL OVERDOSE [None]
  - AGITATION [None]
  - INCORRECT DOSE ADMINISTERED [None]
  - MIOSIS [None]
  - NAUSEA [None]
  - VISUAL DISTURBANCE [None]
  - VOMITING [None]
